FAERS Safety Report 4332097-1 (Version None)
Quarter: 2004Q2

REPORT INFORMATION
  Report Type: 
  Country: None (occurrence: None)
  Receive Date: 20040405
  Receipt Date: 20040323
  Transmission Date: 20050107
  Serious: Yes (Other)
  Sender: FDA-Public Use
  Company Number: NL-GLAXOSMITHKLINE-B0327707A

PATIENT
  Sex: Female

DRUGS (1)
  1. RANITIDINE HYDROCHLORIDE [Suspect]
     Route: 048
     Dates: start: 20040322, end: 20040323

REACTIONS (3)
  - DYSPNOEA [None]
  - FACIAL PALSY [None]
  - FEELING HOT [None]
